FAERS Safety Report 4883277-8 (Version None)
Quarter: 2006Q1

REPORT INFORMATION
  Report Type: 
  Country: None (occurrence: None)
  Receive Date: 20060117
  Receipt Date: 20060117
  Transmission Date: 20060701
  Serious: Yes (Hospitalization)
  Sender: FDA-Public Use
  Company Number: None

PATIENT
  Age: 78 Year
  Sex: Male
  Weight: 66.2 kg

DRUGS (2)
  1. TERAZOSIN [Suspect]
     Indication: BENIGN PROSTATIC HYPERPLASIA
     Dosage: 10MG HS PO
     Route: 048
  2. TERAZOSIN [Suspect]
     Indication: HYPERTENSION
     Dosage: 10MG HS PO
     Route: 048

REACTIONS (2)
  - FALL [None]
  - SYNCOPE [None]
